FAERS Safety Report 16374226 (Version 1)
Quarter: 2019Q2

REPORT INFORMATION
  Report Type: Spontaneous
  Country: US (occurrence: US)
  Receive Date: 20190530
  Receipt Date: 20190530
  Transmission Date: 20190711
  Serious: No
  Sender: FDA-Public Use
  Company Number: US-GALDERMA-US18028810

PATIENT
  Sex: Female

DRUGS (3)
  1. DIFFERIN GEL [Suspect]
     Active Substance: ADAPALENE
     Indication: ACNE
     Dosage: 0.1%
     Route: 061
  2. DIFFERIN DAILY DEEP CLEANSER WITH BPO [Concomitant]
     Active Substance: BENZOYL PEROXIDE
     Indication: ACNE
  3. CETAPHIL DERMACONTROL SPF 30 [Concomitant]
     Active Substance: AVOBENZONE\OCTISALATE\OCTOCRYLENE
     Indication: ACNE
     Route: 061

REACTIONS (6)
  - Skin irritation [Unknown]
  - Skin exfoliation [Unknown]
  - Erythema [Unknown]
  - Skin burning sensation [Unknown]
  - Pain of skin [Unknown]
  - Dry skin [Unknown]
